FAERS Safety Report 10048477 (Version 1)
Quarter: 2014Q1

REPORT INFORMATION
  Report Type: Spontaneous
  Country: US (occurrence: None)
  Receive Date: 20140306
  Receipt Date: 20140306
  Transmission Date: 20141002
  Serious: Yes (Other)
  Sender: FDA-Public Use
  Company Number: 163-21880-13014930

PATIENT
  Age: 57 Year
  Sex: Male

DRUGS (11)
  1. REVLIMID [Suspect]
     Indication: PLASMA CELL MYELOMA
     Route: 048
     Dates: start: 201108
  2. ZOMETA (ZOLEDRONIC ACID) (INJECTION) [Concomitant]
  3. ALPRAZOLAM (OMEPRAZOLE) [Concomitant]
  4. DEXAMETHASONE (DEXAMETHASONE) [Concomitant]
  5. CIALIS (TADALAFIL) [Concomitant]
  6. ONDANSETRON (ONDANSETRON) [Concomitant]
  7. MIRALAX (MACROGOL) [Concomitant]
  8. AMBIEN (ZOLPIDEM TARTRATE) [Concomitant]
  9. FENTANYL (FENTANYL) [Concomitant]
  10. OXYCODONE (OXYCODONE) [Concomitant]
  11. ASPIRIN (ACETYLSALICYLIC ACID) [Concomitant]

REACTIONS (6)
  - Cellulitis [None]
  - Oedema peripheral [None]
  - Inappropriate schedule of drug administration [None]
  - Nasopharyngitis [None]
  - Pruritus [None]
  - Oedema peripheral [None]
